FAERS Safety Report 19760365 (Version 2)
Quarter: 2021Q3

REPORT INFORMATION
  Report Type: Spontaneous
  Country: CO (occurrence: CO)
  Receive Date: 20210830
  Receipt Date: 20210930
  Transmission Date: 20211014
  Serious: No
  Sender: FDA-Public Use
  Company Number: CO-AMGEN-COLSP2021131863

PATIENT
  Age: 46 Year
  Sex: Female
  Weight: 53.4 kg

DRUGS (3)
  1. NEULASTIM [Suspect]
     Active Substance: PEGFILGRASTIM
     Indication: BREAST CANCER IN SITU
     Dosage: 6 MILLIGRAM, Q3WK (EVERY 21 DAYS)
     Route: 058
     Dates: start: 20200505
  2. VINORELBINE [Concomitant]
     Active Substance: VINORELBINE TARTRATE
     Dosage: 35 MILLIGRAM
     Dates: start: 20190703
  3. NEULASTIM [Suspect]
     Active Substance: PEGFILGRASTIM
     Dosage: 6 MILLIGRAM, Q3WK (EVERY 21 DAYS)
     Route: 058

REACTIONS (1)
  - Device occlusion [Unknown]

NARRATIVE: CASE EVENT DATE: 20210819
